FAERS Safety Report 11135827 (Version 1)
Quarter: 2015Q2

REPORT INFORMATION
  Report Type: Spontaneous
  Country: FR (occurrence: FR)
  Receive Date: 20150526
  Receipt Date: 20150526
  Transmission Date: 20150821
  Serious: Yes (Death)
  Sender: FDA-Public Use
  Company Number: FR-SA-2015SA068070

PATIENT
  Age: 84 Year
  Sex: Male

DRUGS (12)
  1. PREVISCAN [Interacting]
     Active Substance: FLUINDIONE
     Indication: ISCHAEMIC STROKE
     Route: 048
     Dates: start: 20150306, end: 20150311
  2. PERMIXON [Concomitant]
     Active Substance: SAW PALMETTO
     Route: 065
  3. METFORMIN [Concomitant]
     Active Substance: METFORMIN HYDROCHLORIDE
     Route: 065
  4. CLOPIDOGREL [Concomitant]
     Active Substance: CLOPIDOGREL BISULFATE
     Route: 065
  5. HEPARIN SODIUM. [Concomitant]
     Active Substance: HEPARIN SODIUM
     Indication: ANTICOAGULANT THERAPY
     Route: 065
     Dates: start: 20150213
  6. LANTUS [Concomitant]
     Active Substance: INSULIN GLARGINE
     Route: 065
  7. PRAVASTATIN [Concomitant]
     Active Substance: PRAVASTATIN\PRAVASTATIN SODIUM
     Route: 065
  8. HEPARIN SODIUM. [Concomitant]
     Active Substance: HEPARIN SODIUM
     Indication: ANTICOAGULANT THERAPY
     Route: 065
     Dates: end: 20150310
  9. LOVENOX [Suspect]
     Active Substance: ENOXAPARIN SODIUM
     Indication: ISCHAEMIC STROKE
     Route: 058
     Dates: start: 20150310, end: 20150311
  10. REPAGLINIDE. [Concomitant]
     Active Substance: REPAGLINIDE
     Route: 065
  11. MOCLAMINE [Concomitant]
     Active Substance: MOCLOBEMIDE
     Route: 065
  12. KARDEGIC [Interacting]
     Active Substance: ASPIRIN LYSINE
     Indication: ISCHAEMIC STROKE
     Route: 048
     Dates: start: 20150311, end: 20150311

REACTIONS (4)
  - Haemorrhagic anaemia [Fatal]
  - Drug interaction [Unknown]
  - International normalised ratio increased [Fatal]
  - Retroperitoneal haematoma [Fatal]

NARRATIVE: CASE EVENT DATE: 20150311
